FAERS Safety Report 8077438-7 (Version None)
Quarter: 2012Q1

REPORT INFORMATION
  Report Type: 
  Country: None (occurrence: None)
  Receive Date: 20120127
  Receipt Date: 20120125
  Transmission Date: 20120608
  Serious: Yes (Hospitalization, Other)
  Sender: FDA-Public Use
  Company Number: PHHO2010US14073

PATIENT
  Sex: Male
  Weight: 92.8 kg

DRUGS (4)
  1. AFINITOR [Suspect]
     Dosage: 10 MG, UNK
     Route: 048
     Dates: end: 20100912
  2. AFINITOR [Suspect]
     Dosage: 10 MG, UNK
     Route: 048
     Dates: start: 20100918, end: 20101006
  3. AFINITOR [Suspect]
     Indication: MANTLE CELL LYMPHOMA REFRACTORY
     Dosage: 10 MG, UNK
     Route: 048
     Dates: start: 20100617, end: 20100826
  4. AFINITOR [Suspect]
     Dosage: 10 MG, UNK
     Route: 048
     Dates: start: 20100830, end: 20100909

REACTIONS (2)
  - NEUTROPENIA [None]
  - FEBRILE NEUTROPENIA [None]
